FAERS Safety Report 5509798-2 (Version None)
Quarter: 2007Q4

REPORT INFORMATION
  Report Type: 
  Country: None (occurrence: None)
  Receive Date: 20071107
  Receipt Date: 20071107
  Transmission Date: 20080405
  Serious: No
  Sender: FDA-Public Use
  Company Number: None

PATIENT
  Age: 72 Year
  Sex: Male

DRUGS (2)
  1. POTASSIUM CHLORIDE [Suspect]
     Indication: DIURETIC THERAPY
     Dosage: 20MEQ EVERY DAY PO -} DECREASED 16 MEQ ON 7/20
     Route: 048
     Dates: start: 20070712, end: 20070726
  2. LISINOPRIL [Suspect]
     Indication: DIABETES MELLITUS
     Dosage: 40MG EVERY DAY PO
     Route: 048
     Dates: start: 20041123

REACTIONS (1)
  - HYPERKALAEMIA [None]
